FAERS Safety Report 9753912 (Version 1)
Quarter: 2013Q4

REPORT INFORMATION
  Report Type: Spontaneous
  Country: BR (occurrence: BR)
  Receive Date: 20131213
  Receipt Date: 20131213
  Transmission Date: 20140711
  Serious: Yes (Other)
  Sender: FDA-Public Use
  Company Number: PHHY2013BR144396

PATIENT
  Sex: Female
  Weight: 62.8 kg

DRUGS (11)
  1. ELIDEL [Suspect]
     Indication: VITILIGO
     Dosage: TWICE IN THE FACE DAILY
     Route: 061
  2. ELIDEL [Suspect]
     Indication: OFF LABEL USE
  3. CLOBETASOL PROPIONATE [Suspect]
     Indication: VITILIGO
     Dosage: 5 MG; SPORADICALLY (WHEN PHYSICIAN ORIENT)
  4. CLOBETASOL PROPIONATE [Suspect]
     Indication: RASH PAPULAR
  5. DERMABLEND COVER [Suspect]
     Indication: VITILIGO
     Dosage: UNK UKN, UNK
  6. CAPTOPRIL SANDOZ [Suspect]
     Indication: HYPERTENSION
     Dosage: 1 DF, DAILY
     Dates: start: 2003
  7. HYDROCHLOROTHIAZIDE [Suspect]
     Indication: HYPERTENSION
     Dosage: 1 DF, DAILY
     Dates: start: 2003
  8. A.R.A [Suspect]
     Indication: HYPERTENSION
     Dosage: 250 MG, DAILY
     Dates: start: 2008
  9. METFORMIN [Suspect]
     Indication: DIABETES MELLITUS
     Dosage: 850 MG, DAILY
  10. LEVOTHYROXINE SODIUM [Suspect]
     Indication: HYPOTHYROIDISM
     Dosage: 1 DF, DAILY
  11. AAS [Suspect]
     Indication: HYPERTENSION
     Dosage: 1 DF, DAILY

REACTIONS (5)
  - Tooth fracture [Recovered/Resolved]
  - Vitiligo [Not Recovered/Not Resolved]
  - Pigmentation disorder [Not Recovered/Not Resolved]
  - Urticaria [Unknown]
  - Drug ineffective [Not Recovered/Not Resolved]
